FAERS Safety Report 7866879-6 (Version None)
Quarter: 2011Q4

REPORT INFORMATION
  Report Type: 
  Country: None (occurrence: None)
  Receive Date: 20111028
  Receipt Date: 20111019
  Transmission Date: 20120403
  Serious: Yes (Life-Threatening, Hospitalization)
  Sender: FDA-Public Use
  Company Number: JP-SANOFI-AVENTIS-2011SA063942

PATIENT
  Age: 61 Year
  Sex: Male
  Weight: 86 kg

DRUGS (7)
  1. BIPERIDEN HYDROCHLORIDE TAB [Suspect]
     Route: 048
     Dates: start: 20090503, end: 20110829
  2. LEVOTOMIN [Suspect]
     Route: 048
     Dates: start: 20100428, end: 20110829
  3. SENNOSIDE A+B [Concomitant]
     Indication: CONSTIPATION
     Dates: start: 20090415
  4. RISPERDAL [Suspect]
     Route: 048
     Dates: start: 20100428, end: 20110829
  5. LITHIUM CARBONATE [Suspect]
     Route: 048
     Dates: start: 20090503, end: 20110909
  6. ZOLPIDEM [Suspect]
     Route: 048
     Dates: start: 20100428, end: 20111006
  7. HUMALOG [Concomitant]
     Dates: start: 20101110

REACTIONS (3)
  - HAEMORRHAGE SUBCUTANEOUS [None]
  - HAEMORRHAGIC DIATHESIS [None]
  - PLATELET COUNT DECREASED [None]
